FAERS Safety Report 8318752-7 (Version None)
Quarter: 2012Q2

REPORT INFORMATION
  Report Type: 
  Country: None (occurrence: None)
  Receive Date: 20120427
  Receipt Date: 20090818
  Transmission Date: 20120825
  Serious: No
  Sender: FDA-Public Use
  Company Number: US-TEVA-2009009723

PATIENT
  Sex: Female

DRUGS (5)
  1. NUVIGIL [Suspect]
     Indication: SOMNOLENCE
     Dosage: 150 MILLIGRAM;
     Route: 048
     Dates: start: 20090813
  2. PROTONIX [Concomitant]
     Indication: ABDOMINAL DISCOMFORT
     Dosage: 40 MILLIGRAM;
  3. NUVIGIL [Suspect]
     Indication: ASTHENIA
  4. AMRIX [Concomitant]
     Indication: GLYCOGEN STORAGE DISEASE TYPE V
     Dosage: 15 MILLIGRAM;
     Route: 048
     Dates: start: 20090101
  5. ESTRADIOL [Concomitant]
     Indication: HORMONE REPLACEMENT THERAPY
     Dosage: 1 MILLIGRAM;

REACTIONS (2)
  - MUSCLE SPASMS [None]
  - INTENTIONAL DRUG MISUSE [None]
